FAERS Safety Report 16941925 (Version 2)
Quarter: 2020Q1

REPORT INFORMATION
  Report Type: Report from Study
  Country: CA (occurrence: CA)
  Receive Date: 20191021
  Receipt Date: 20200128
  Transmission Date: 20200409
  Serious: Yes (Death, Hospitalization)
  Sender: FDA-Public Use
  Company Number: CA-INCYTE CORPORATION-2019IN010438

PATIENT

DRUGS (3)
  1. JAKAVI [Suspect]
     Active Substance: RUXOLITINIB
     Dosage: UNK
     Route: 048
     Dates: start: 20191003
  2. JAKAVI [Suspect]
     Active Substance: RUXOLITINIB
     Indication: MYELOFIBROSIS
     Dosage: 20 MG, BID
     Route: 048
  3. JAKAVI [Suspect]
     Active Substance: RUXOLITINIB
     Dosage: 5 MG, BID, RECEIVED FOR 2.5 DAYS UNTIL SATURDAY MORNING
     Route: 048
     Dates: start: 20190926, end: 20190928

REACTIONS (9)
  - Speech disorder [Unknown]
  - Splenic infarction [Unknown]
  - Pain [Unknown]
  - Death [Fatal]
  - Myelofibrosis [Unknown]
  - Platelet count decreased [Unknown]
  - Splenomegaly [Unknown]
  - Malaise [Unknown]
  - Pyrexia [Unknown]

NARRATIVE: CASE EVENT DATE: 201910
